FAERS Safety Report 5014829-2 (Version None)
Quarter: 2006Q2

REPORT INFORMATION
  Report Type: 
  Country: None (occurrence: None)
  Receive Date: 20060419
  Receipt Date: 20051013
  Transmission Date: 20061013
  Serious: Yes (Other)
  Sender: FDA-Public Use
  Company Number: 2005-03935

PATIENT
  Age: 43 Year
  Sex: Female
  Weight: 61.2 kg

DRUGS (2)
  1. FERRLECIT [Suspect]
     Indication: DRUG INTOLERANCE
     Dosage: 125 MG, INFUSED OVER 1 HR 2/WEEK, INTRAVENOUS
     Route: 042
     Dates: start: 20051004, end: 20051011
  2. FERRLECIT [Suspect]
     Indication: IRON DEFICIENCY ANAEMIA
     Dosage: 125 MG, INFUSED OVER 1 HR 2/WEEK, INTRAVENOUS
     Route: 042
     Dates: start: 20051004, end: 20051011

REACTIONS (9)
  - ANAPHYLACTIC REACTION [None]
  - HYPOTENSION [None]
  - INFUSION SITE RASH [None]
  - NAUSEA [None]
  - OEDEMA PERIPHERAL [None]
  - PLEURITIC PAIN [None]
  - SYNCOPE [None]
  - URTICARIA [None]
  - VOMITING [None]
